FAERS Safety Report 14174244 (Version 3)
Quarter: 2018Q1

REPORT INFORMATION
  Report Type: Report from Study
  Country: JP (occurrence: JP)
  Receive Date: 20171109
  Receipt Date: 20180215
  Transmission Date: 20180508
  Serious: Yes (Hospitalization, Other)
  Sender: FDA-Public Use
  Company Number: JP-MYLANLABS-2017M1068472

PATIENT
  Age: 18 Year
  Sex: Female
  Weight: 30 kg

DRUGS (21)
  1. NICYSTAGON CAP. 50MG [Suspect]
     Active Substance: CYSTEAMINE
     Indication: CYSTINOSIS
     Dosage: 250 MG, QID
     Route: 048
     Dates: start: 20140806, end: 20160304
  2. PROGRAF [Concomitant]
     Active Substance: TACROLIMUS\TACROLIMUS ANHYDROUS
     Dosage: 2 MG, UNK
     Route: 048
     Dates: start: 20170224, end: 20170615
  3. REGPARA [Concomitant]
     Active Substance: CINACALCET HYDROCHLORIDE
     Dosage: 2.5 MG, UNK
     Route: 048
     Dates: start: 20160317
  4. PROGRAF [Concomitant]
     Active Substance: TACROLIMUS\TACROLIMUS ANHYDROUS
     Dosage: 5 MG, UNK
     Route: 048
     Dates: start: 20160729, end: 20161221
  5. PROGRAF [Concomitant]
     Active Substance: TACROLIMUS\TACROLIMUS ANHYDROUS
     Dosage: 4 MG, UNK
     Route: 048
     Dates: start: 20161222, end: 20170204
  6. PROGRAF [Concomitant]
     Active Substance: TACROLIMUS\TACROLIMUS ANHYDROUS
     Dosage: 3 MG, UNK
     Route: 048
     Dates: start: 20170205, end: 20170223
  7. REGPARA [Concomitant]
     Active Substance: CINACALCET HYDROCHLORIDE
     Indication: PRODUCT USED FOR UNKNOWN INDICATION
     Dosage: 7.5 MG, UNK
     Route: 048
     Dates: start: 20110208, end: 20150301
  8. CELLCEPT [Concomitant]
     Active Substance: MYCOPHENOLATE MOFETIL\MYCOPHENOLATE MOFETIL HYDROCHLORIDE
     Dosage: 250 MG, UNK
     Route: 048
     Dates: start: 20170205, end: 20170615
  9. CELLCEPT [Concomitant]
     Active Substance: MYCOPHENOLATE MOFETIL\MYCOPHENOLATE MOFETIL HYDROCHLORIDE
     Dosage: 500 MG, UNK
     Route: 048
     Dates: start: 20170616
  10. THYRADIN S [Concomitant]
     Active Substance: LEVOTHYROXINE SODIUM
     Indication: PRODUCT USED FOR UNKNOWN INDICATION
     Dosage: 25 ?G, UNK
     Route: 048
     Dates: start: 20100318
  11. PROGRAF [Concomitant]
     Active Substance: TACROLIMUS\TACROLIMUS ANHYDROUS
     Indication: PRODUCT USED FOR UNKNOWN INDICATION
     Dosage: 2 MG, UNK
     Route: 048
     Dates: start: 20150301, end: 20160728
  12. ALFACALCIDOL [Concomitant]
     Active Substance: ALFACALCIDOL
     Dosage: 1 ?G, UNK
     Route: 048
     Dates: start: 20170217
  13. SODIUM BICARBONATE. [Concomitant]
     Active Substance: SODIUM BICARBONATE
     Indication: PRODUCT USED FOR UNKNOWN INDICATION
     Dosage: 3000 MG, UNK
     Route: 048
     Dates: start: 20160513, end: 20170204
  14. CALCIUM CARBONATE. [Concomitant]
     Active Substance: CALCIUM CARBONATE
     Indication: PRODUCT USED FOR UNKNOWN INDICATION
     Dosage: 750 MG, UNK
     Route: 048
     Dates: start: 20160603, end: 20170303
  15. CELLCEPT [Concomitant]
     Active Substance: MYCOPHENOLATE MOFETIL\MYCOPHENOLATE MOFETIL HYDROCHLORIDE
     Indication: PRODUCT USED FOR UNKNOWN INDICATION
     Dosage: 250 MG, UNK
     Route: 048
     Dates: start: 20150301, end: 20160728
  16. CELLCEPT [Concomitant]
     Active Substance: MYCOPHENOLATE MOFETIL\MYCOPHENOLATE MOFETIL HYDROCHLORIDE
     Dosage: 500 MG, UNK
     Route: 048
     Dates: start: 20160729, end: 20170204
  17. ALFACALCIDOL [Concomitant]
     Active Substance: ALFACALCIDOL
     Indication: PRODUCT USED FOR UNKNOWN INDICATION
     Dosage: 1.25 ?G, UNK
     Route: 048
     Dates: start: 20160513, end: 20170216
  18. SOLDEM 1 [Concomitant]
     Active Substance: DEXTROSE\SODIUM CHLORIDE\SODIUM LACTATE
     Indication: PRODUCT USED FOR UNKNOWN INDICATION
     Dosage: 500 ML, UNK
     Route: 042
     Dates: start: 20161116, end: 20161121
  19. PROGRAF [Concomitant]
     Active Substance: TACROLIMUS\TACROLIMUS ANHYDROUS
     Dosage: 3 MG, UNK
     Route: 048
     Dates: start: 20170616
  20. NICYSTAGON CAP. 50MG [Suspect]
     Active Substance: CYSTEAMINE
     Dosage: 300 MG, QID
     Route: 048
     Dates: start: 20160305
  21. RENIVACE [Concomitant]
     Active Substance: ENALAPRIL
     Indication: PRODUCT USED FOR UNKNOWN INDICATION
     Dosage: 5 MG, UNK
     Route: 048
     Dates: start: 20161028, end: 20170204

REACTIONS (1)
  - Kidney transplant rejection [Recovered/Resolved]

NARRATIVE: CASE EVENT DATE: 20161116
